FAERS Safety Report 8478880-2 (Version None)
Quarter: 2012Q2

REPORT INFORMATION
  Report Type: 
  Country: None (occurrence: None)
  Receive Date: 20120629
  Receipt Date: 20120622
  Transmission Date: 20120825
  Serious: Yes (Hospitalization)
  Sender: FDA-Public Use
  Company Number: VE-PFIZER INC-2012144692

PATIENT
  Age: 85 Year
  Sex: Female

DRUGS (4)
  1. LIPITOR [Suspect]
     Indication: HYPERCHOLESTEROLAEMIA
     Dosage: 80 MG, 1X/DAY
     Route: 048
     Dates: start: 20070101
  2. GALVUSMETIPTIN [Concomitant]
     Dosage: 50/500MG, UNK
  3. PANTOPRAZOLE [Concomitant]
     Dosage: 40 MG, 1X/DAY
     Route: 048
  4. ATACOR [Concomitant]
     Dosage: 20 MG, 1X/DAY
     Route: 048

REACTIONS (1)
  - ABDOMINAL DISTENSION [None]
